FAERS Safety Report 9960704 (Version 1)
Quarter: 2014Q1

REPORT INFORMATION
  Report Type: Report from Study
  Country: US (occurrence: US)
  Receive Date: 20140305
  Receipt Date: 20140305
  Transmission Date: 20141002
  Serious: No
  Sender: FDA-Public Use
  Company Number: US-ABBVIE-13P-163-1108193-00

PATIENT
  Sex: Female
  Weight: 57.2 kg

DRUGS (2)
  1. HUMIRA [Suspect]
     Indication: RHEUMATOID ARTHRITIS
     Dosage: HELD ONE DOSE
     Dates: start: 20130515
  2. CA, MTX, MVI, PAXIL, VITAM D, AND E XANA [Concomitant]
     Indication: PRODUCT USED FOR UNKNOWN INDICATION

REACTIONS (3)
  - Unevaluable event [Recovered/Resolved]
  - Contusion [Recovered/Resolved]
  - Rheumatoid arthritis [Unknown]
